FAERS Safety Report 5418424-2 (Version None)
Quarter: 2007Q3

REPORT INFORMATION
  Report Type: 
  Country: None (occurrence: None)
  Receive Date: 20070817
  Receipt Date: 20070806
  Transmission Date: 20080115
  Serious: Yes (Hospitalization)
  Sender: FDA-Public Use
  Company Number: JP-AMGEN-US239049

PATIENT
  Sex: Male

DRUGS (11)
  1. ENBREL [Suspect]
     Indication: RHEUMATOID ARTHRITIS
     Route: 058
     Dates: start: 20050428
  2. ALINAMIN [Concomitant]
     Dosage: UNKNOWN
     Route: 048
  3. LOXONIN [Concomitant]
     Indication: RHEUMATOID ARTHRITIS
     Dosage: UNKNOWN
     Route: 048
  4. SELBEX [Concomitant]
     Dosage: UNKNOWN
     Route: 048
  5. VOLTAREN [Concomitant]
     Indication: RHEUMATOID ARTHRITIS
     Dosage: UNKNOWN
     Route: 048
  6. GLIMICRON [Concomitant]
     Dosage: UNKNOWN
     Route: 048
  7. DIOVAN [Concomitant]
     Dosage: UNKNOWN
     Route: 048
  8. BASEN [Concomitant]
     Dosage: UNKNOWN
     Route: 045
  9. ISCOTIN [Concomitant]
     Dosage: UNKNOWN
     Route: 048
  10. PREDONINE [Concomitant]
     Indication: RHEUMATOID ARTHRITIS
     Dosage: UNKNOWN
     Route: 048
  11. BONALON [Concomitant]
     Dosage: UNKNOWN
     Route: 048

REACTIONS (5)
  - AUTONOMIC NEUROPATHY [None]
  - CEREBELLAR ATROPHY [None]
  - CONDITION AGGRAVATED [None]
  - INTERSTITIAL LUNG DISEASE [None]
  - PARKINSON'S DISEASE [None]
